FAERS Safety Report 5269965-2 (Version None)
Quarter: 2007Q2

REPORT INFORMATION
  Report Type: 
  Country: None (occurrence: None)
  Receive Date: 20070314
  Receipt Date: 20070301
  Transmission Date: 20071010
  Serious: Yes (Death)
  Sender: FDA-Public Use
  Company Number: 2006S1000146

PATIENT
  Age: 7 Day
  Sex: Male

DRUGS (10)
  1. NITRIC OXIDE [Suspect]
     Indication: LUNG DISORDER
     Dosage: 5 PPM; INH_GAS; INH; CONT
     Route: 055
     Dates: start: 20060718, end: 20060725
  2. NITRIC OXIDE [Suspect]
     Indication: PROPHYLAXIS
     Dosage: 5 PPM; INH_GAS; INH; CONT
     Route: 055
     Dates: start: 20060718, end: 20060725
  3. DOPAMINE HCL [Concomitant]
  4. DOBUTAMINE (DOBUTAMINE) [Concomitant]
  5. MORPHINE [Concomitant]
  6. HYDROCORTISONE [Concomitant]
  7. INDOMETHACIN [Concomitant]
  8. AUGMENTIN (NO PREF. NAME) [Concomitant]
  9. GENTAMICIN (GEMTAMICIN) [Concomitant]
  10. MIDAZOLAM HCL [Concomitant]

REACTIONS (5)
  - ASCITES [None]
  - INTRAVENTRICULAR HAEMORRHAGE NEONATAL [None]
  - NEONATAL DISORDER [None]
  - PATENT DUCTUS ARTERIOSUS [None]
  - SEPSIS NEONATAL [None]
